FAERS Safety Report 9139553 (Version 1)
Quarter: 2013Q1

REPORT INFORMATION
  Report Type: Spontaneous
  Country: PT (occurrence: PT)
  Receive Date: 20130305
  Receipt Date: 20130305
  Transmission Date: 20140127
  Serious: Yes (Hospitalization, Other)
  Sender: FDA-Public Use
  Company Number: PT-TEVA-386449ISR

PATIENT
  Age: 8 Year
  Sex: Female

DRUGS (2)
  1. SERTRALINE [Suspect]
     Indication: DEPRESSION
     Dosage: 30 TABLETS OF SERTRALINE 50MG
  2. RISPERIDONE [Concomitant]
     Indication: ATTENTION DEFICIT/HYPERACTIVITY DISORDER

REACTIONS (13)
  - Serotonin syndrome [Unknown]
  - Intentional overdose [Unknown]
  - Hyperthermia [Unknown]
  - Hypertension [Unknown]
  - Tachycardia [Unknown]
  - Hyperhidrosis [Unknown]
  - Salivary hypersecretion [Unknown]
  - Muscle rigidity [Unknown]
  - Psychomotor hyperactivity [Unknown]
  - Myoclonus [Unknown]
  - Tremor [Unknown]
  - Rhabdomyolysis [Unknown]
  - Hepatocellular injury [Unknown]
